FAERS Safety Report 9767227 (Version 1)
Quarter: 2013Q4

REPORT INFORMATION
  Report Type: Spontaneous
  Country: US (occurrence: US)
  Receive Date: 20131217
  Receipt Date: 20131217
  Transmission Date: 20140711
  Serious: Yes (Hospitalization)
  Sender: FDA-Public Use
  Company Number: US-GLAXOSMITHKLINE-A1044749A

PATIENT
  Age: 57 Year
  Sex: Female

DRUGS (1)
  1. VOTRIENT [Suspect]
     Indication: SOFT TISSUE CANCER
     Dosage: 600MG PER DAY
     Route: 048
     Dates: start: 20130825

REACTIONS (7)
  - Oxygen supplementation [Not Recovered/Not Resolved]
  - Dyspnoea [Not Recovered/Not Resolved]
  - Heart rate irregular [Unknown]
  - Chest discomfort [Unknown]
  - Chest pain [Unknown]
  - Ejection fraction decreased [Unknown]
  - Heart rate increased [Not Recovered/Not Resolved]
